FAERS Safety Report 6301176-1 (Version None)
Quarter: 2009Q3

REPORT INFORMATION
  Report Type: 
  Country: None (occurrence: None)
  Receive Date: 20090807
  Receipt Date: 20090727
  Transmission Date: 20100115
  Serious: Yes (Other)
  Sender: FDA-Public Use
  Company Number: PHHY2009JP31577

PATIENT
  Sex: Male

DRUGS (3)
  1. VOLTAREN [Suspect]
     Indication: URINARY TRACT PAIN
     Route: 048
  2. COSPANON [Suspect]
     Indication: CALCULUS URINARY
     Dosage: 240 MG/DAY
     Route: 048
  3. COLIOPAN [Suspect]
     Indication: URINARY TRACT PAIN
     Dosage: 15 MG/DAY

REACTIONS (3)
  - INCORRECT ROUTE OF DRUG ADMINISTRATION [None]
  - NAUSEA [None]
  - URINARY RETENTION [None]
